FAERS Safety Report 16814499 (Version 1)
Quarter: 2019Q3

REPORT INFORMATION
  Report Type: Report from Study
  Country: US (occurrence: US)
  Receive Date: 20190917
  Receipt Date: 20190917
  Transmission Date: 20191005
  Serious: Yes (Hospitalization, Other)
  Sender: FDA-Public Use
  Company Number: US-TEVA-2019-US-1057969

PATIENT
  Age: 78 Year
  Sex: Female

DRUGS (2)
  1. COPAXONE [Suspect]
     Active Substance: GLATIRAMER ACETATE
     Dates: start: 20190726
  2. GLATIRAMER ACETATE. [Suspect]
     Active Substance: GLATIRAMER ACETATE

REACTIONS (15)
  - Upper limb fracture [Unknown]
  - Nerve injury [Unknown]
  - Dizziness [Unknown]
  - Walking aid user [Not Recovered/Not Resolved]
  - Fall [Unknown]
  - Thrombosis [Unknown]
  - Injection site pain [Recovered/Resolved]
  - Muscle atrophy [Unknown]
  - Concussion [Unknown]
  - Injection site indentation [Unknown]
  - Muscle tightness [Unknown]
  - Injection site erythema [Unknown]
  - Injection site swelling [Unknown]
  - Optic neuritis [Unknown]
  - Urinary incontinence [Unknown]

NARRATIVE: CASE EVENT DATE: 2019
